FAERS Safety Report 23978508 (Version 1)
Quarter: 2024Q2

REPORT INFORMATION
  Report Type: Spontaneous
  Country: US (occurrence: US)
  Receive Date: 20240614
  Receipt Date: 20240614
  Transmission Date: 20240716
  Serious: Yes (Life-Threatening, Hospitalization, Other)
  Sender: FDA-Public Use
  Company Number: US-PFIZER INC-202400193146

PATIENT
  Age: 69 Year
  Sex: Male

DRUGS (1)
  1. XELJANZ XR [Suspect]
     Active Substance: TOFACITINIB CITRATE
     Indication: Colitis
     Dosage: 22 MG, DAILY
     Route: 048

REACTIONS (8)
  - Cardiac arrest [Recovering/Resolving]
  - Escherichia sepsis [Recovering/Resolving]
  - Pneumonia [Recovering/Resolving]
  - Pneumonia streptococcal [Recovering/Resolving]
  - Immunosuppression [Unknown]
  - Colitis [Unknown]
  - Off label use [Unknown]
  - Drug effective for unapproved indication [Unknown]
